FAERS Safety Report 9642715 (Version 2)
Quarter: 2013Q4

REPORT INFORMATION
  Report Type: Spontaneous
  Country: TW (occurrence: TW)
  Receive Date: 20131024
  Receipt Date: 20131127
  Transmission Date: 20140711
  Serious: Yes (Hospitalization, Other)
  Sender: FDA-Public Use
  Company Number: TW-AMGEN-TWNSP2013075106

PATIENT
  Age: 88 Year
  Sex: Female

DRUGS (6)
  1. ENBREL [Suspect]
     Indication: RHEUMATOID ARTHRITIS
     Dosage: 50 MG, 2X/WEEK
     Route: 058
     Dates: end: 20131005
  2. SULFASALAZINE [Concomitant]
     Dosage: 1000 MG, 2X/DAY
     Route: 048
  3. PLAQUENIL                          /00072602/ [Concomitant]
     Dosage: 200 MG, 2X/DAY
     Route: 048
  4. TRAMADOL [Concomitant]
     Dosage: 500 MG, 2X/DAY
     Route: 048
  5. ATIVAN [Concomitant]
     Dosage: 0.5 MG, 1X/DAY
     Route: 048
  6. MOSAPRIDE [Concomitant]
     Dosage: 5 MG, 2X/DAY
     Route: 048

REACTIONS (10)
  - Acute respiratory failure [Recovered/Resolved]
  - Torsade de pointes [Recovering/Resolving]
  - Hypokalaemia [Recovering/Resolving]
  - Oral neoplasm [Recovering/Resolving]
  - Renal failure acute [Recovering/Resolving]
  - Sepsis [Recovering/Resolving]
  - Pneumonia [Recovering/Resolving]
  - Urinary tract infection [Recovering/Resolving]
  - Escherichia bacteraemia [Recovering/Resolving]
  - Cardiac failure congestive [Recovering/Resolving]
